FAERS Safety Report 14893600 (Version 4)
Quarter: 2021Q4

REPORT INFORMATION
  Report Type: Report from Study
  Country: AR (occurrence: AR)
  Receive Date: 20180514
  Receipt Date: 20211117
  Transmission Date: 20220304
  Serious: Yes (Death, Life-Threatening, Other)
  Sender: FDA-Public Use
  Company Number: AR-SHIRE-AR201817346

PATIENT
  Age: 14 Year
  Sex: Male

DRUGS (1)
  1. IDURSULFASE [Suspect]
     Active Substance: IDURSULFASE
     Indication: Mucopolysaccharidosis II
     Dosage: 0.5 MILLIGRAM/KILOGRAM, 1/WEEK
     Route: 042
     Dates: start: 20070801

REACTIONS (6)
  - Cardio-respiratory arrest [Fatal]
  - Cognitive disorder [Fatal]
  - Neuropathy peripheral [Fatal]
  - Cerebral disorder [Fatal]
  - Seizure [Recovered/Resolved]
  - Interstitial lung disease [Recovered/Resolved]

NARRATIVE: CASE EVENT DATE: 20140102
